FAERS Safety Report 21915887 (Version 2)
Quarter: 2023Q1

REPORT INFORMATION
  Report Type: Spontaneous
  Country: US (occurrence: US)
  Receive Date: 20230126
  Receipt Date: 20230127
  Transmission Date: 20230418
  Serious: Yes (Other)
  Sender: FDA-Public Use
  Company Number: US-PFIZER INC-202300034194

PATIENT
  Age: 65 Year
  Sex: Female
  Weight: 73.94 kg

DRUGS (2)
  1. PAXLOVID [Suspect]
     Active Substance: NIRMATRELVIR\RITONAVIR
     Indication: COVID-19 treatment
     Dosage: UNK (300 MILLIGRAMS AND 100 MILLIGRAMS DOSE PACKAGE)
  2. TRIAMTERENE [Concomitant]
     Active Substance: TRIAMTERENE
     Indication: Blood pressure abnormal
     Dosage: UNK

REACTIONS (3)
  - Mental impairment [Unknown]
  - Dysgeusia [Unknown]
  - Stomatitis [Unknown]
